FAERS Safety Report 5777062-2 (Version None)
Quarter: 2008Q2

REPORT INFORMATION
  Report Type: 
  Country: None (occurrence: None)
  Receive Date: 20080617
  Receipt Date: 20071025
  Transmission Date: 20081010
  Serious: No
  Sender: FDA-Public Use
  Company Number: 2007BH008683

PATIENT
  Age: 56 Year
  Sex: Male

DRUGS (4)
  1. HEPARIN SODIUM 1,000 UNITS AND SODIUM CHLORIDE 0.9% [Suspect]
     Indication: DYSPNOEA
     Dosage: 125 ML; EVERY HR;
     Dates: start: 20071013, end: 20071013
  2. OXYGEN [Concomitant]
  3. SODIUM CHLORIDE [Concomitant]
  4. MAGNESIUM SULFATE [Concomitant]

REACTIONS (1)
  - ACCIDENTAL OVERDOSE [None]
